FAERS Safety Report 12532085 (Version 1)
Quarter: 2016Q3

REPORT INFORMATION
  Report Type: Spontaneous
  Country: US (occurrence: US)
  Receive Date: 20160706
  Receipt Date: 20160706
  Transmission Date: 20161109
  Serious: No
  Sender: FDA-Public Use
  Company Number: US-PFIZER INC-3196624

PATIENT
  Sex: Male

DRUGS (2)
  1. DEXTROSE. [Suspect]
     Active Substance: DEXTROSE
     Indication: MEDICATION DILUTION
     Dosage: 100 ML, CONTINUOUS, INTRAVENOUS PIGGYBACK
  2. DILTIAZEM HCL [Suspect]
     Active Substance: DILTIAZEM HYDROCHLORIDE
     Indication: ATRIAL FIBRILLATION
     Dosage: 100 MG, CONTINUOUS, INTRAVENOUS PIGGYBACK

REACTIONS (2)
  - Drug dose omission [Recovered/Resolved]
  - Product closure issue [Recovered/Resolved]
